FAERS Safety Report 5917485-1 (Version None)
Quarter: 2008Q4

REPORT INFORMATION
  Report Type: 
  Country: None (occurrence: None)
  Receive Date: 20081010
  Receipt Date: 20081010
  Transmission Date: 20090506
  Serious: Yes (Other)
  Sender: FDA-Public Use
  Company Number: None

PATIENT
  Sex: Female
  Weight: 88.905 kg

DRUGS (1)
  1. TRICOR [Suspect]
     Indication: BLOOD CHOLESTEROL INCREASED
     Dosage: ONE TABLET PER DAY ONE PER DAY PO
     Route: 048
     Dates: start: 20080806, end: 20080901

REACTIONS (6)
  - ARTHRALGIA [None]
  - CONSTIPATION [None]
  - DISCOMFORT [None]
  - FATIGUE [None]
  - MYALGIA [None]
  - PAIN [None]
